FAERS Safety Report 7591119-5 (Version None)
Quarter: 2011Q3

REPORT INFORMATION
  Report Type: 
  Country: None (occurrence: None)
  Receive Date: 20110705
  Receipt Date: 20110624
  Transmission Date: 20111222
  Serious: Yes (Other)
  Sender: FDA-Public Use
  Company Number: US-ASTRAZENECA-2011SE35551

PATIENT
  Age: 64 Year
  Sex: Female

DRUGS (2)
  1. KADIAN [Suspect]
  2. CRESTOR [Suspect]
     Indication: BLOOD CHOLESTEROL ABNORMAL
     Route: 048

REACTIONS (2)
  - HAEMATEMESIS [None]
  - MALAISE [None]
